FAERS Safety Report 8935334 (Version 1)
Quarter: 2012Q4

REPORT INFORMATION
  Report Type: 
  Country: US (occurrence: US)
  Receive Date: 20121129
  Receipt Date: 20121129
  Transmission Date: 20130627
  Serious: Yes (Congenital Anomaly, Other)
  Sender: FDA-Public Use
  Company Number: US-PFIZER INC-2012297331

PATIENT
  Age: 10 Month
  Sex: Female
  Weight: 4 kg

DRUGS (1)
  1. ZOLOFT [Suspect]
     Indication: ANXIETY
     Dosage: 50 mg, 1x/day
     Route: 064
     Dates: start: 20101214

REACTIONS (6)
  - Maternal exposure timing unspecified [Unknown]
  - Fallot^s tetralogy [Unknown]
  - Right ventricle outflow tract obstruction [Unknown]
  - Ventricular septal defect [Unknown]
  - Pulmonary valve stenosis congenital [Unknown]
  - Atrial septal defect [Unknown]
